FAERS Safety Report 23863439 (Version 1)
Quarter: 2024Q2

REPORT INFORMATION
  Report Type: Spontaneous
  Country: US (occurrence: US)
  Receive Date: 20240516
  Receipt Date: 20240516
  Transmission Date: 20240716
  Serious: No
  Sender: FDA-Public Use
  Company Number: US-SANDOZ-SDZ2024US049127

PATIENT
  Sex: Female

DRUGS (1)
  1. ESTRADIOL [Suspect]
     Active Substance: ESTRADIOL
     Indication: Product used for unknown indication
     Dosage: UNK, 0.1MG/1D 4TT
     Route: 065

REACTIONS (3)
  - Application site pruritus [Unknown]
  - Application site erythema [Not Recovered/Not Resolved]
  - Application site pain [Unknown]
